FAERS Safety Report 8310543-6 (Version None)
Quarter: 2012Q2

REPORT INFORMATION
  Report Type: 
  Country: None (occurrence: None)
  Receive Date: 20120425
  Receipt Date: 20110421
  Transmission Date: 20120825
  Serious: No
  Sender: FDA-Public Use
  Company Number: US-PFIZER INC-K201100525

PATIENT
  Sex: Female

DRUGS (8)
  1. CISPLATIN [Concomitant]
     Indication: HEAD AND NECK CANCER
     Dosage: UNK
  2. AVINZA [Suspect]
     Dosage: UNK
  3. FLUOROURACIL [Concomitant]
     Indication: HEAD AND NECK CANCER
     Dosage: UNK
  4. LEVOTHYROXINE SODIUM [Concomitant]
     Indication: HYPOTHYROIDISM
     Dosage: 50 UG, UNK
  5. FLUOXETINE HYDROCHLORIDE [Concomitant]
     Indication: DEPRESSION
     Dosage: 20 MG, UNK
  6. CETUXIMAB [Concomitant]
     Indication: HEAD AND NECK CANCER
  7. POTASSIUM CHLORIDE [Concomitant]
  8. DIPHENHYDRAMINE HYDROCHLORIDE [Concomitant]
     Dosage: UNK

REACTIONS (1)
  - DRUG HYPERSENSITIVITY [None]
